FAERS Safety Report 12187593 (Version 1)
Quarter: 2016Q1

REPORT INFORMATION
  Report Type: Spontaneous
  Country: US (occurrence: US)
  Receive Date: 20160317
  Receipt Date: 20160317
  Transmission Date: 20160526
  Serious: No
  Sender: FDA-Public Use
  Company Number: US-WARNER CHILCOTT, LLC-1049249

PATIENT
  Age: 56 Year
  Sex: Female

DRUGS (3)
  1. ESTRACE [Suspect]
     Active Substance: ESTRADIOL
     Route: 067
  2. MULTIVITAMIN [Concomitant]
     Active Substance: VITAMINS
  3. ESTRACE [Suspect]
     Active Substance: ESTRADIOL
     Indication: VULVOVAGINAL DISCOMFORT
     Route: 067

REACTIONS (4)
  - Incorrect dose administered [Recovered/Resolved]
  - Vulvovaginal injury [Recovered/Resolved]
  - Application site haemorrhage [Recovered/Resolved]
  - Wrong technique in product usage process [Recovered/Resolved]
